FAERS Safety Report 19494729 (Version 1)
Quarter: 2021Q3

REPORT INFORMATION
  Report Type: Spontaneous
  Country: FR (occurrence: FR)
  Receive Date: 20210705
  Receipt Date: 20210705
  Transmission Date: 20211014
  Serious: Yes (Hospitalization, Other)
  Sender: FDA-Public Use
  Company Number: FR-MYLANLABS-2021M1038946

PATIENT
  Age: 1 Day
  Sex: Male
  Weight: 4.05 kg

DRUGS (1)
  1. PAROXETINE. [Suspect]
     Active Substance: PAROXETINE
     Indication: DEPRESSION
     Dosage: 10 MILLIGRAM, QD
     Route: 064
     Dates: end: 20201120

REACTIONS (6)
  - Foetal exposure during pregnancy [Recovered/Resolved]
  - Thrombocytopenia [Recovered/Resolved]
  - Subgaleal haematoma [Recovering/Resolving]
  - Disseminated intravascular coagulation [Recovered/Resolved]
  - Hepatic cytolysis [Recovered/Resolved]
  - Shock haemorrhagic [Recovered/Resolved]

NARRATIVE: CASE EVENT DATE: 20201123
